FAERS Safety Report 17853523 (Version 1)
Quarter: 2020Q2

REPORT INFORMATION
  Report Type: Spontaneous
  Country: US (occurrence: US)
  Receive Date: 20200602
  Receipt Date: 20200602
  Transmission Date: 20200714
  Serious: No
  Sender: FDA-Public Use
  Company Number: US-ARBOR PHARMACEUTICALS, LLC-US-2019ARB001601

PATIENT
  Sex: Female
  Weight: 47.62 kg

DRUGS (3)
  1. HORIZANT [Suspect]
     Active Substance: GABAPENTIN ENACARBIL
     Indication: PRODUCT USED FOR UNKNOWN INDICATION
     Dosage: 600 MG, BID
     Route: 048
     Dates: start: 2019, end: 2019
  2. HORIZANT [Suspect]
     Active Substance: GABAPENTIN ENACARBIL
     Dosage: 300 MG, TID
     Route: 048
     Dates: start: 201809, end: 2019
  3. HORIZANT [Suspect]
     Active Substance: GABAPENTIN ENACARBIL
     Dosage: 1 - 600 MG TABLET IN THE MORNING, 1 - 300 MG TABLET AT NIGHT
     Route: 048
     Dates: start: 2019

REACTIONS (2)
  - Product intolerance [Unknown]
  - Adverse event [Unknown]

NARRATIVE: CASE EVENT DATE: 2019
